FAERS Safety Report 23662629 (Version 1)
Quarter: 2024Q1

REPORT INFORMATION
  Report Type: Spontaneous
  Country: US (occurrence: US)
  Receive Date: 20240322
  Receipt Date: 20240322
  Transmission Date: 20240410
  Serious: Yes (Other)
  Sender: FDA-Public Use
  Company Number: US-BAYER-2024A041958

PATIENT
  Age: 27 Year
  Sex: Male
  Weight: 86.168 kg

DRUGS (1)
  1. KOVALTRY [Suspect]
     Active Substance: ANTIHEMOPHILIC FACTOR, HUMAN RECOMBINANT
     Indication: Factor VIII deficiency
     Dosage: 4000 U, QOD
     Route: 042
     Dates: start: 202402

REACTIONS (2)
  - Haemorrhage [None]
  - Weight increased [None]

NARRATIVE: CASE EVENT DATE: 20240216
